FAERS Safety Report 4985754-8 (Version None)
Quarter: 2006Q2

REPORT INFORMATION
  Report Type: 
  Country: None (occurrence: None)
  Receive Date: 20060428
  Receipt Date: 20050615
  Transmission Date: 20061013
  Serious: No
  Sender: FDA-Public Use
  Company Number: US-GLAXOSMITHKLINE-A0562821A

PATIENT
  Age: 72 Year
  Sex: Female

DRUGS (3)
  1. ZOFRAN [Suspect]
     Dosage: 32MG AS REQUIRED
     Route: 042
     Dates: start: 20050406, end: 20050615
  2. DECADRON [Suspect]
     Dosage: 10MG AS REQUIRED
     Dates: start: 20050406, end: 20050615
  3. TAXOTERE [Concomitant]

REACTIONS (3)
  - ERYTHEMA [None]
  - PRURITUS [None]
  - SWELLING [None]
